FAERS Safety Report 10175018 (Version 2)
Quarter: 2014Q2

REPORT INFORMATION
  Report Type: Spontaneous
  Country: JP (occurrence: JP)
  Receive Date: 20140515
  Receipt Date: 20140515
  Transmission Date: 20141212
  Serious: Yes (Death, Other)
  Sender: FDA-Public Use
  Company Number: PHHY2014JP053525

PATIENT
  Age: 46 Year
  Sex: Male
  Weight: 53 kg

DRUGS (9)
  1. VOLTAREN [Suspect]
     Indication: PAIN
     Route: 054
  2. CARBAMAZEPINE [Suspect]
     Indication: TRIGEMINAL NEURALGIA
     Dosage: 200 MG, PER DAY
  3. MORPHINE [Suspect]
     Indication: PAIN
     Dosage: 60 MG, PER DAY
  4. MORPHINE [Suspect]
     Dosage: 10 MG, PER DOSE
  5. MORPHINE [Suspect]
     Dosage: 20 MG, PER DOSE
  6. MORPHINE [Suspect]
     Dosage: 6 MG, PER HOUR
     Route: 041
  7. OXYCODONE HYDROCHLORIDE [Suspect]
     Indication: PAIN
     Dosage: 60 MG, PER DAY
  8. OXYCODONE HYDROCHLORIDE [Suspect]
     Dosage: 80 MG, PER DAY
  9. OXYCODONE HYDROCHLORIDE [Suspect]
     Dosage: 200 MG, PER DAY

REACTIONS (3)
  - Death [Fatal]
  - Pain [Unknown]
  - Drug ineffective [Unknown]
